FAERS Safety Report 9740161 (Version 1)
Quarter: 2013Q4

REPORT INFORMATION
  Report Type: Spontaneous
  Country: GB (occurrence: GB)
  Receive Date: 20131209
  Receipt Date: 20131209
  Transmission Date: 20140711
  Serious: Yes (Other)
  Sender: FDA-Public Use
  Company Number: GB-TEVA-449087ISR

PATIENT
  Age: 79 Year
  Sex: Male
  Weight: 87.8 kg

DRUGS (17)
  1. AMLODIPINE [Suspect]
     Indication: CARDIAC FAILURE
     Dosage: 5 MILLIGRAM DAILY;
     Route: 048
     Dates: start: 200603
  2. IMDUR [Concomitant]
  3. SIMVASTATIN [Concomitant]
  4. NASONEX [Concomitant]
  5. PARACETAMOL [Concomitant]
  6. DESLORATADINE [Concomitant]
  7. ALENDRONIC ACID [Concomitant]
     Dates: start: 200703
  8. ADCAL-D3 [Concomitant]
  9. CANDESARTAN [Concomitant]
  10. OMEPRAZOLE [Concomitant]
  11. NICORANDIL [Concomitant]
  12. ATENOLOL [Concomitant]
  13. MOVICOL [Concomitant]
  14. ASPIRIN [Concomitant]
  15. PREDNISOLONE [Concomitant]
  16. OILATUM [Concomitant]
  17. E45 [Concomitant]

REACTIONS (5)
  - Cough [Not Recovered/Not Resolved]
  - Rhinitis allergic [Not Recovered/Not Resolved]
  - Constipation [Not Recovered/Not Resolved]
  - Extrapyramidal disorder [Not Recovered/Not Resolved]
  - Condition aggravated [Unknown]
